FAERS Safety Report 6392919-X (Version None)
Quarter: 2009Q4

REPORT INFORMATION
  Report Type: 
  Country: None (occurrence: None)
  Receive Date: 20091007
  Receipt Date: 20090922
  Transmission Date: 20100525
  Serious: No
  Sender: FDA-Public Use
  Company Number: US-ALLERGAN-0913068US

PATIENT
  Age: 54 Year
  Sex: Female

DRUGS (9)
  1. LATISSE [Suspect]
     Indication: HYPOTRICHOSIS
     Dosage: 1 GTT, QHS
     Route: 061
  2. LAMICTAL [Concomitant]
     Indication: GRAND MAL CONVULSION
  3. PROPRANOLOL [Concomitant]
  4. ^MIXTURE OF MEDICAITONS^ [Concomitant]
     Indication: MIGRAINE
  5. AMITRIPTYLINE [Concomitant]
  6. AMBIEN [Concomitant]
     Indication: SLEEP DISORDER
  7. FISH OIL [Concomitant]
  8. MASCARA [Concomitant]
  9. EYELINER [Concomitant]

REACTIONS (1)
  - DRUG INEFFECTIVE [None]
